FAERS Safety Report 23204182 (Version 1)
Quarter: 2023Q4

REPORT INFORMATION
  Report Type: Spontaneous
  Country: US (occurrence: None)
  Receive Date: 20231120
  Receipt Date: 20231120
  Transmission Date: 20240109
  Serious: Yes (Hospitalization)
  Sender: FDA-Public Use
  Company Number: None

PATIENT
  Age: 29 Year
  Sex: Female
  Weight: 90 kg

DRUGS (1)
  1. SEMAGLUTIDE [Suspect]
     Active Substance: SEMAGLUTIDE
     Indication: Weight decreased
     Dates: end: 20231106

REACTIONS (7)
  - Dizziness [None]
  - Vision blurred [None]
  - Chills [None]
  - Chest discomfort [None]
  - Hypoaesthesia [None]
  - Head discomfort [None]
  - Tinnitus [None]

NARRATIVE: CASE EVENT DATE: 20231105
